FAERS Safety Report 20016808 (Version 1)
Quarter: 2021Q4

REPORT INFORMATION
  Report Type: Spontaneous
  Country: US (occurrence: None)
  Receive Date: 20211105
  Receipt Date: 20211105
  Transmission Date: 20220303
  Serious: Yes (Other)
  Sender: FDA-Public Use
  Company Number: None

PATIENT
  Age: 46 Year

DRUGS (11)
  1. HIZENTRA [Suspect]
     Active Substance: HUMAN IMMUNOGLOBULIN G
     Indication: Hypogammaglobulinaemia
     Dosage: FREQUENCY : WEEKLY;?
     Route: 058
  2. Amitriptyline 50mg PO daily [Concomitant]
  3. Fish oil 1000mg PO daily [Concomitant]
  4. Ketoconazole 2% topical PRN [Concomitant]
  5. Lysine 1000mg PO daily [Concomitant]
  6. Morphine sulfate 100mg PO BID [Concomitant]
  7. Nucynta 200mg PO PRN [Concomitant]
  8. Toprol XL 50mg BID [Concomitant]
  9. Triton 100mg PRN [Concomitant]
  10. Venlafaxin 150mg PO daily [Concomitant]
  11. Zinc gluconate 15mg PO daily [Concomitant]

REACTIONS (5)
  - Infusion site warmth [None]
  - Infusion site erythema [None]
  - Infusion site rash [None]
  - Infusion site mass [None]
  - Infusion site bruising [None]

NARRATIVE: CASE EVENT DATE: 20211026
